FAERS Safety Report 17324931 (Version 1)
Quarter: 2020Q1

REPORT INFORMATION
  Report Type: Spontaneous
  Country: FR (occurrence: FR)
  Receive Date: 20200127
  Receipt Date: 20200127
  Transmission Date: 20200409
  Serious: Yes (Other)
  Sender: FDA-Public Use
  Company Number: FR-ELI_LILLY_AND_COMPANY-FR202001009582

PATIENT
  Age: 46 Year
  Sex: Female

DRUGS (8)
  1. OLUMIANT [Suspect]
     Active Substance: BARICITINIB
     Indication: PRODUCT USED FOR UNKNOWN INDICATION
     Dosage: UNK UNK, UNKNOWN
     Route: 065
     Dates: start: 20191205, end: 20200120
  2. FORLAX [MACROGOL] [Concomitant]
     Active Substance: POLYETHYLENE GLYCOL 4000
  3. LUTERAN [Concomitant]
     Active Substance: CHLORMADINONE ACETATE
  4. PANTOPRAZOLE [Concomitant]
     Active Substance: PANTOPRAZOLE
  5. EUPHYTOSE [BALLOTA NIGRA EXTRACT;COLA NITIDA [Concomitant]
  6. ACUPAN [Concomitant]
     Active Substance: NEFOPAM HYDROCHLORIDE
  7. ZYMA [Concomitant]
     Active Substance: PROBIOTICS NOS
  8. TRAMADOL. [Concomitant]
     Active Substance: TRAMADOL

REACTIONS (1)
  - Weight increased [Unknown]

NARRATIVE: CASE EVENT DATE: 20191205
